FAERS Safety Report 23693920 (Version 1)
Quarter: 2024Q2

REPORT INFORMATION
  Report Type: Spontaneous
  Country: CN (occurrence: None)
  Receive Date: 20240401
  Receipt Date: 20240401
  Transmission Date: 20240716
  Serious: Yes (Life-Threatening, Hospitalization)
  Sender: FDA-Public Use
  Company Number: 2024A077284

PATIENT
  Age: 2415 Week
  Sex: Male
  Weight: 78 kg

DRUGS (2)
  1. PULMICORT TURBUHALER [Suspect]
     Active Substance: BUDESONIDE
     Indication: Peritonsillitis
     Route: 055
     Dates: start: 20191106, end: 20191106
  2. PIPERACILLIN AND TAZOBACTAM [Suspect]
     Active Substance: PIPERACILLIN SODIUM\TAZOBACTAM SODIUM
     Indication: Peritonsillitis
     Route: 041
     Dates: start: 20191106, end: 20191106

REACTIONS (11)
  - Vomiting [Recovering/Resolving]
  - Tachypnoea [Recovering/Resolving]
  - Dizziness [Unknown]
  - Maxillofacial pain [Unknown]
  - Pallor [Unknown]
  - Peripheral coldness [Unknown]
  - Chest pain [Unknown]
  - Heart rate decreased [Unknown]
  - Respiratory rate increased [Unknown]
  - Hypotension [Unknown]
  - Oxygen saturation decreased [Unknown]

NARRATIVE: CASE EVENT DATE: 20191106
